FAERS Safety Report 17147013 (Version 1)
Quarter: 2019Q4

REPORT INFORMATION
  Report Type: Spontaneous
  Country: FR (occurrence: FR)
  Receive Date: 20191212
  Receipt Date: 20191212
  Transmission Date: 20200122
  Serious: Yes (Life-Threatening, Hospitalization)
  Sender: FDA-Public Use
  Company Number: FR-ZYDUS-021743

PATIENT
  Age: 0 Day
  Sex: Female
  Weight: 2.33 kg

DRUGS (1)
  1. TRAMADOL. [Suspect]
     Active Substance: TRAMADOL
     Indication: PAIN
     Dosage: NP ()
     Route: 064
     Dates: end: 20171129

REACTIONS (2)
  - Infantile apnoea [Not Recovered/Not Resolved]
  - Bradypnoea [Not Recovered/Not Resolved]

NARRATIVE: CASE EVENT DATE: 20171129
